FAERS Safety Report 5379910-7 (Version None)
Quarter: 2007Q3

REPORT INFORMATION
  Report Type: 
  Country: None (occurrence: None)
  Receive Date: 20070706
  Receipt Date: 20070627
  Transmission Date: 20080115
  Serious: Yes (Hospitalization)
  Sender: FDA-Public Use
  Company Number: PHEH2007US09323

PATIENT
  Age: 81 Year
  Sex: Female

DRUGS (1)
  1. ZELNORM [Suspect]
     Indication: GASTROINTESTINAL DISORDER
     Dates: start: 20061201, end: 20070606

REACTIONS (4)
  - COLITIS [None]
  - DIARRHOEA [None]
  - PAIN [None]
  - VOMITING [None]
